FAERS Safety Report 5056987-X (Version None)
Quarter: 2006Q3

REPORT INFORMATION
  Report Type: 
  Country: None (occurrence: None)
  Receive Date: 20060721
  Receipt Date: 20060711
  Transmission Date: 20061208
  Serious: Yes (Other)
  Sender: FDA-Public Use
  Company Number: US-JNJFOC-20060702143

PATIENT
  Age: 56 Year
  Sex: Female

DRUGS (12)
  1. REMICADE [Suspect]
     Route: 042
  2. REMICADE [Suspect]
     Indication: RHEUMATOID ARTHRITIS
     Route: 042
  3. SULFASALAZINE [Concomitant]
  4. LYRICA [Concomitant]
  5. CYMBALTA [Concomitant]
  6. HYDROCHLOROTHIAZIDE [Concomitant]
  7. ATENOLOL [Concomitant]
  8. ULTRAM [Concomitant]
  9. DARVOCET [Concomitant]
  10. ZANAFLEX [Concomitant]
  11. VICODIN [Concomitant]
  12. CALCIUM GLUCONATE [Concomitant]

REACTIONS (4)
  - ANKLE FRACTURE [None]
  - EYE OEDEMA [None]
  - VISUAL DISTURBANCE [None]
  - WHEEZING [None]
